FAERS Safety Report 23251598 (Version 1)
Quarter: 2023Q4

REPORT INFORMATION
  Report Type: Report from Study
  Country: MX (occurrence: None)
  Receive Date: 20231201
  Receipt Date: 20231201
  Transmission Date: 20240109
  Serious: Yes (Death, Hospitalization, Other)
  Sender: FDA-Public Use
  Company Number: 2023A084001

PATIENT
  Age: 19554 Day
  Sex: Female

DRUGS (1)
  1. TAGRISSO [Suspect]
     Active Substance: OSIMERTINIB
     Indication: Lung neoplasm malignant
     Route: 048
     Dates: start: 20201125

REACTIONS (14)
  - Death [Fatal]
  - Pulmonary septal thickening [Unknown]
  - Lung consolidation [Unknown]
  - General physical health deterioration [Unknown]
  - Small airways disease [Unknown]
  - Hiatus hernia [Unknown]
  - Interstitial lung disease [Unknown]
  - Osteochondrosis [Unknown]
  - Spondyloarthropathy [Unknown]
  - Pulmonary mass [Unknown]
  - Aortic arteriosclerosis [Unknown]
  - Pulmonary granuloma [Unknown]
  - Spinal osteoarthritis [Unknown]
  - Bone density decreased [Unknown]

NARRATIVE: CASE EVENT DATE: 20221105
